FAERS Safety Report 21876944 (Version 2)
Quarter: 2023Q1

REPORT INFORMATION
  Report Type: Spontaneous
  Country: PT (occurrence: PT)
  Receive Date: 20230118
  Receipt Date: 20230120
  Transmission Date: 20230417
  Serious: Yes (Death)
  Sender: FDA-Public Use
  Company Number: PT-CELLTRION INC.-2023PT000487

PATIENT

DRUGS (6)
  1. RITUXIMAB [Suspect]
     Active Substance: RITUXIMAB
     Indication: Systemic scleroderma
  2. RITUXIMAB [Suspect]
     Active Substance: RITUXIMAB
     Indication: Myopathy
  3. PREDNISOLONE [Suspect]
     Active Substance: PREDNISOLONE
     Indication: Myopathy
  4. PREDNISOLONE [Suspect]
     Active Substance: PREDNISOLONE
     Indication: Systemic scleroderma
  5. HYDROXYCHLOROQUINE [Suspect]
     Active Substance: HYDROXYCHLOROQUINE
     Indication: Myopathy
  6. HYDROXYCHLOROQUINE [Suspect]
     Active Substance: HYDROXYCHLOROQUINE
     Indication: Systemic scleroderma

REACTIONS (3)
  - Nosocomial infection [Fatal]
  - Off label use [Fatal]
  - Disease progression [Unknown]
